FAERS Safety Report 10070026 (Version 1)
Quarter: 2014Q2

REPORT INFORMATION
  Report Type: Spontaneous
  Country: US (occurrence: None)
  Receive Date: 20140409
  Receipt Date: 20140409
  Transmission Date: 20141212
  Serious: No
  Sender: FDA-Public Use
  Company Number: None

PATIENT
  Age: 28 Year
  Sex: Male
  Weight: 52.16 kg

DRUGS (1)
  1. LEUCOVORIN [Suspect]
     Indication: HEPATOBILIARY CANCER
     Dosage: 500MG/M2 EVERY 14 DAYS INTRAVENOUS
     Route: 042
     Dates: start: 20130101, end: 20140109

REACTIONS (3)
  - Flushing [None]
  - Nausea [None]
  - Back pain [None]
